FAERS Safety Report 4348496-8 (Version None)
Quarter: 2004Q2

REPORT INFORMATION
  Report Type: 
  Country: None (occurrence: None)
  Receive Date: 20040423
  Receipt Date: 20040412
  Transmission Date: 20050107
  Serious: Yes (Other)
  Sender: FDA-Public Use
  Company Number: 200411791BCC

PATIENT
  Age: 14 Year
  Sex: Female
  Weight: 58.9676 kg

DRUGS (1)
  1. BACTINE ANTISEPTIC ANESTHETIC PUMP [Suspect]
     Dates: start: 20040412

REACTIONS (3)
  - CORNEAL DISORDER [None]
  - EYE IRRITATION [None]
  - VISION BLURRED [None]
